FAERS Safety Report 19917067 (Version 3)
Quarter: 2021Q4

REPORT INFORMATION
  Report Type: Spontaneous
  Country: IN (occurrence: IN)
  Receive Date: 20211005
  Receipt Date: 20211018
  Transmission Date: 20220303
  Serious: Yes (Hospitalization, Other)
  Sender: FDA-Public Use
  Company Number: IN-CIPLA LTD.-2021IN06562

PATIENT

DRUGS (1)
  1. WARFARIN [Suspect]
     Active Substance: WARFARIN
     Indication: Anticoagulant therapy
     Dosage: 3 MILLIGRAM, QD
     Route: 065
     Dates: start: 2010

REACTIONS (3)
  - Anticoagulant-related nephropathy [Recovered/Resolved]
  - Cutaneous vasculitis [Recovered/Resolved]
  - Anticoagulation drug level above therapeutic [Recovered/Resolved]
